FAERS Safety Report 15140770 (Version 2)
Quarter: 2018Q3

REPORT INFORMATION
  Report Type: Spontaneous
  Country: AT (occurrence: AT)
  Receive Date: 20180713
  Receipt Date: 20180723
  Transmission Date: 20181010
  Serious: Yes (Hospitalization)
  Sender: FDA-Public Use
  Company Number: AT-SA-2018SA154260

PATIENT
  Age: 44 Year
  Sex: Female
  Weight: 52 kg

DRUGS (8)
  1. CAPRELSA [Suspect]
     Active Substance: VANDETANIB
     Indication: ADENOCARCINOMA OF COLON
     Dosage: 200 MG, BID
     Route: 048
     Dates: start: 20180627
  2. VIREAD [Concomitant]
     Active Substance: TENOFOVIR DISOPROXIL FUMARATE
     Dosage: 245 MG, QD
  3. PROTHIPENDYL [Concomitant]
     Active Substance: PROTHIPENDYL
     Indication: INSOMNIA
  4. PANTOLOC CONTROL [Concomitant]
  5. VENDAL [MORPHINE HYDROCHLORIDE] [Concomitant]
     Indication: PAIN
     Dosage: 5 MG
  6. CAPRELSA [Suspect]
     Active Substance: VANDETANIB
     Indication: COLON CANCER
     Dosage: 200 MG, BID
     Route: 048
     Dates: start: 20180619, end: 20180711
  7. TAVANIC [Concomitant]
     Active Substance: LEVOFLOXACIN
  8. NOVALGIN (CAFFEINE\PARACETAMOL\PROPYPHENAZONE) [Concomitant]
     Active Substance: ACETAMINOPHEN\CAFFEINE\PROPYPHENAZONE
     Indication: PAIN
     Dosage: 30 DROP, QID

REACTIONS (3)
  - Large intestinal obstruction [Recovered/Resolved]
  - Off label use [Unknown]
  - Neoplasm progression [Not Recovered/Not Resolved]

NARRATIVE: CASE EVENT DATE: 20180619
